FAERS Safety Report 12934624 (Version 13)
Quarter: 2017Q4

REPORT INFORMATION
  Report Type: Report from Study
  Country: None (occurrence: BE)
  Receive Date: 20161111
  Receipt Date: 20171101
  Transmission Date: 20180320
  Serious: Yes (Hospitalization, Other)
  Sender: FDA-Public Use
  Company Number: BE-ABBVIE-16P-013-1776754-00

PATIENT
  Age: 78 Year
  Sex: Female

DRUGS (11)
  1. DUODOPA [Suspect]
     Active Substance: CARBIDOPA\LEVODOPA
     Indication: PARKINSON^S DISEASE
     Dosage: UNKNOWN DOSAGE
     Route: 050
     Dates: start: 20100308, end: 20100309
  2. DUODOPA [Suspect]
     Active Substance: CARBIDOPA\LEVODOPA
     Dosage: MD+ 2 ML; CD= 2.1 ML/H DURING 16 HRS; EDA= 1.2 ML
     Route: 050
     Dates: start: 20170619, end: 2017
  3. DUODOPA [Suspect]
     Active Substance: CARBIDOPA\LEVODOPA
     Dosage: AM= 0 ML; CD= 1.3 ML/H DURING 16 HRS; ED= 1 ML
     Route: 050
     Dates: start: 20160921, end: 20161109
  4. DUODOPA [Suspect]
     Active Substance: CARBIDOPA\LEVODOPA
     Dosage: AM= 0 ML; CD= 0.9 ML/H DURING 16 HRS; ED= 0.7 ML
     Route: 050
     Dates: start: 2017, end: 20170307
  5. DUODOPA [Suspect]
     Active Substance: CARBIDOPA\LEVODOPA
     Dosage: AM= 0 ML; CD= 0.9 ML/H DURING 16 HRS; ED= 0.7 ML
     Route: 050
     Dates: start: 20170117, end: 2017
  6. DUODOPA [Suspect]
     Active Substance: CARBIDOPA\LEVODOPA
     Dosage: MD=2ML?CD=2.3ML/HR DURING 16HRS?EDA=1.2ML
     Route: 050
     Dates: start: 201708
  7. PROLOPA [Concomitant]
     Active Substance: BENSERAZIDE\LEVODOPA
     Indication: PRODUCT USED FOR UNKNOWN INDICATION
     Dosage: 6/DAY AS RESCUE MEDICATION
  8. DUODOPA [Suspect]
     Active Substance: CARBIDOPA\LEVODOPA
     Dosage: DOSES CONTINUOUSLY MONITORED AND ADAPTED
     Route: 050
     Dates: start: 20100428, end: 20160921
  9. DUODOPA [Suspect]
     Active Substance: CARBIDOPA\LEVODOPA
     Dosage: AM= 3 ML; CD= 1 ML/H DURING 16 HRS; ED=0,7 ML
     Route: 050
     Dates: start: 20161109, end: 20170117
  10. DUODOPA [Suspect]
     Active Substance: CARBIDOPA\LEVODOPA
     Dosage: AM= 2.5 ML; CD= 2.5 ML/H DURING 16 HRS; ED= 1.5 ML
     Route: 050
     Dates: start: 20100309, end: 20100428
  11. DUODOPA [Suspect]
     Active Substance: CARBIDOPA\LEVODOPA
     Dosage: AM= 0 ML; CD= 1.1 ML/H DURING 16 HRS; ED= 0.7 ML
     Route: 050
     Dates: start: 20170307, end: 20170619

REACTIONS (14)
  - Hallucination [Unknown]
  - Freezing phenomenon [Unknown]
  - Device dislocation [Recovered/Resolved]
  - Dehydration [Unknown]
  - Syncope [Unknown]
  - Mobility decreased [Unknown]
  - Confusional state [Unknown]
  - Dyskinesia [Recovering/Resolving]
  - Fall [Recovering/Resolving]
  - Loss of consciousness [Recovering/Resolving]
  - Balance disorder [Unknown]
  - Asthenia [Unknown]
  - Anaemia [Unknown]
  - Coma [Recovering/Resolving]

NARRATIVE: CASE EVENT DATE: 201701
